FAERS Safety Report 18617151 (Version 1)
Quarter: 2020Q4

REPORT INFORMATION
  Report Type: Spontaneous
  Country: US (occurrence: US)
  Receive Date: 20201214
  Receipt Date: 20201214
  Transmission Date: 20210114
  Serious: Yes (Hospitalization)
  Sender: FDA-Public Use
  Company Number: None

PATIENT
  Age: 39 Year
  Sex: Female
  Weight: 133.9 kg

DRUGS (7)
  1. BAMLANIVIMAB. [Suspect]
     Active Substance: BAMLANIVIMAB
     Indication: SUSPECTED COVID-19
     Dosage: ?          OTHER FREQUENCY:ONCE;?
     Route: 042
     Dates: start: 20201213, end: 20201213
  2. BAMLANIVIMAB 700MG [Concomitant]
     Active Substance: BAMLANIVIMAB
     Dates: start: 20201213, end: 20201213
  3. DUONEB 3ML NEB ONCE [Concomitant]
     Dates: start: 20201213, end: 20201213
  4. KEPPRA 1500MG ONCE [Concomitant]
     Dates: start: 20201213, end: 20201213
  5. ACETAMINOPHEN 1000MG PO [Concomitant]
     Dates: start: 20201213, end: 20201213
  6. FENTANYL 25 MCG IV ONCE [Concomitant]
     Dates: start: 20201213, end: 20201213
  7. ONDANSETRON 4MG IV [Concomitant]
     Active Substance: ONDANSETRON
     Dates: start: 20201213, end: 20201213

REACTIONS (2)
  - Seizure [None]
  - Therapy interrupted [None]

NARRATIVE: CASE EVENT DATE: 20201213
